FAERS Safety Report 22334189 (Version 1)
Quarter: 2023Q2

REPORT INFORMATION
  Report Type: Spontaneous
  Country: US (occurrence: US)
  Receive Date: 20230517
  Receipt Date: 20230517
  Transmission Date: 20230721
  Serious: No
  Sender: FDA-Public Use
  Company Number: US-Vifor (International) Inc.-VIT-2023-03130

PATIENT
  Sex: Female

DRUGS (1)
  1. VELTASSA [Suspect]
     Active Substance: PATIROMER
     Indication: Product used for unknown indication
     Dosage: TOOK IT ABOUT TWO TIMES

REACTIONS (3)
  - Diarrhoea [Unknown]
  - Nausea [Unknown]
  - Off label use [Unknown]
